FAERS Safety Report 24393974 (Version 2)
Quarter: 2024Q4

REPORT INFORMATION
  Report Type: Report from Study
  Country: US (occurrence: US)
  Receive Date: 20241003
  Receipt Date: 20241011
  Transmission Date: 20250115
  Serious: Yes (Hospitalization, Other)
  Sender: ABBVIE
  Company Number: US-ABBVIE-5946583

PATIENT
  Sex: Female
  Weight: 68 kg

DRUGS (1)
  1. CREON [Suspect]
     Active Substance: PANCRELIPASE AMYLASE\PANCRELIPASE LIPASE\PANCRELIPASE PROTEASE
     Indication: Pancreatic failure
     Dosage: FREQUENCY TIME: 8?FORM STRENGTH: 24000 UNIT?2 CAPS EACH MEAL, 2 CAPS EACH SNACK
     Route: 048
     Dates: start: 200409

REACTIONS (4)
  - Pancreatitis [Recovering/Resolving]
  - COVID-19 [Recovered/Resolved]
  - Hypophagia [Unknown]
  - Fluid intake reduced [Unknown]

NARRATIVE: CASE EVENT DATE: 20240101
